FAERS Safety Report 8409246-9 (Version None)
Quarter: 2012Q2

REPORT INFORMATION
  Report Type: 
  Country: None (occurrence: None)
  Receive Date: 20120604
  Receipt Date: 20120517
  Transmission Date: 20120825
  Serious: No
  Sender: FDA-Public Use
  Company Number: US-ASTRAZENECA-2011SE26230

PATIENT
  Age: 71 Year
  Sex: Female

DRUGS (9)
  1. NEXIUM [Suspect]
     Dosage: ONE PER DAY
     Route: 048
  2. LISINOPRIL [Suspect]
     Route: 048
  3. NEXIUM [Suspect]
     Route: 048
  4. NEXIUM [Suspect]
     Dosage: TWO PER DAY
     Route: 048
  5. RHINOCORT [Suspect]
     Dosage: 32 MCG, 2 SPRAYS IN EACH NOSTRIL QD
     Route: 045
  6. NEXIUM [Suspect]
     Route: 048
  7. CRESTOR [Suspect]
     Route: 048
  8. TOPROL-XL [Suspect]
     Route: 048
  9. ACCOLATE [Suspect]
     Indication: ASTHMA
     Route: 048

REACTIONS (15)
  - BACK DISORDER [None]
  - CHEILITIS [None]
  - DYSPNOEA [None]
  - PARANASAL SINUS HYPERSECRETION [None]
  - DRUG HYPERSENSITIVITY [None]
  - GASTROOESOPHAGEAL REFLUX DISEASE [None]
  - COUGH [None]
  - RHINORRHOEA [None]
  - INCREASED UPPER AIRWAY SECRETION [None]
  - ASTHMA [None]
  - DRUG INEFFECTIVE [None]
  - ORAL MUCOSAL BLISTERING [None]
  - DYSGEUSIA [None]
  - SINUS DISORDER [None]
  - STOMATITIS [None]
